FAERS Safety Report 18799744 (Version 1)
Quarter: 2021Q1

REPORT INFORMATION
  Report Type: Report from Study
  Country: EG (occurrence: EG)
  Receive Date: 20210128
  Receipt Date: 20210128
  Transmission Date: 20210419
  Serious: Yes (Other)
  Sender: FDA-Public Use
  Company Number: EG-AMGEN-EGYSL2021012107

PATIENT
  Age: 21 Year
  Sex: Male

DRUGS (4)
  1. AMGEVITA [Suspect]
     Active Substance: ADALIMUMAB
     Indication: UVEITIS
     Dosage: 40 MILLIGRAM, EVERY OTHER WEEK
     Route: 065
     Dates: start: 20200913, end: 20210115
  2. AMGEVITA [Suspect]
     Active Substance: ADALIMUMAB
     Indication: JUVENILE IDIOPATHIC ARTHRITIS
  3. METHOTREXATE. [Concomitant]
     Active Substance: METHOTREXATE
     Dosage: UNK
     Dates: end: 202012
  4. CORTISONE [Concomitant]
     Active Substance: CORTISONE

REACTIONS (4)
  - Renal impairment [Unknown]
  - Arthralgia [Unknown]
  - Hepatic function abnormal [Unknown]
  - Epistaxis [Unknown]
